FAERS Safety Report 15084930 (Version 4)
Quarter: 2018Q3

REPORT INFORMATION
  Report Type: Spontaneous
  Country: FR (occurrence: FR)
  Receive Date: 20180628
  Receipt Date: 20180715
  Transmission Date: 20181010
  Serious: Yes (Death, Other)
  Sender: FDA-Public Use
  Company Number: PHHY2018FR032568

PATIENT
  Age: 42 Year
  Sex: Male
  Weight: 55 kg

DRUGS (11)
  1. ROPIVACAINE HYDROCHLORIDE. [Suspect]
     Active Substance: ROPIVACAINE HYDROCHLORIDE
     Indication: ANALGESIC INTERVENTION SUPPORTIVE THERAPY
     Dosage: 150 MG, UNK
     Route: 041
     Dates: start: 20180328
  2. NIMBEX [Suspect]
     Active Substance: CISATRACURIUM BESYLATE
     Dosage: 7 MG, SINGLE,  IN TOTAL
     Route: 041
  3. ONDANSETRON [Suspect]
     Active Substance: ONDANSETRON
     Indication: PROPHYLAXIS OF NAUSEA AND VOMITING
     Dosage: 4 MG, UNK
     Route: 041
     Dates: start: 20180328
  4. KETAMINE [Suspect]
     Active Substance: KETAMINE
     Indication: GENERAL ANAESTHESIA
     Dosage: 20 MG, UNK
     Route: 041
     Dates: start: 20180328
  5. DROPERIDOL. [Suspect]
     Active Substance: DROPERIDOL
     Indication: PROPHYLAXIS OF NAUSEA AND VOMITING
     Dosage: 0.63 G, UNK
     Route: 041
     Dates: start: 20180328
  6. NIMBEX [Suspect]
     Active Substance: CISATRACURIUM BESYLATE
     Indication: GENERAL ANAESTHESIA
     Dosage: 7 MG, UNK
     Route: 041
     Dates: start: 20180328
  7. DEXAMETHASONE. [Suspect]
     Active Substance: DEXAMETHASONE
     Indication: PROPHYLAXIS OF NAUSEA AND VOMITING
     Dosage: 8 G, UNK
     Route: 041
     Dates: start: 20180328
  8. ACUPAIN (NEFOPAM HYDROCHLORIDE) [Suspect]
     Active Substance: NEFOPAM HYDROCHLORIDE
     Indication: ANALGESIC INTERVENTION SUPPORTIVE THERAPY
     Dosage: 20 MG, UNK
     Route: 041
     Dates: start: 20180328
  9. PARACETAMOL [Suspect]
     Active Substance: ACETAMINOPHEN
     Indication: ANALGESIC INTERVENTION SUPPORTIVE THERAPY
     Dosage: 1 G, UNK
     Route: 041
     Dates: start: 20180328
  10. PROPOFOL. [Suspect]
     Active Substance: PROPOFOL
     Indication: GENERAL ANAESTHESIA
     Dosage: 200 MG, UNK
     Route: 041
     Dates: start: 20180328
  11. MORPHINE [Suspect]
     Active Substance: MORPHINE
     Indication: ANALGESIC INTERVENTION SUPPORTIVE THERAPY
     Dosage: 8 MG, UNK
     Route: 041
     Dates: start: 20180328

REACTIONS (2)
  - Cardio-respiratory arrest [Fatal]
  - Hypoxic-ischaemic encephalopathy [Fatal]

NARRATIVE: CASE EVENT DATE: 20180328
